FAERS Safety Report 21327317 (Version 1)
Quarter: 2022Q3

REPORT INFORMATION
  Report Type: Spontaneous
  Country: US (occurrence: None)
  Receive Date: 20220912
  Receipt Date: 20220912
  Transmission Date: 20221027
  Serious: Yes (Hospitalization)
  Sender: FDA-Public Use
  Company Number: None

PATIENT
  Sex: Male

DRUGS (1)
  1. ZIEXTENZO [Suspect]
     Active Substance: PEGFILGRASTIM-BMEZ
     Indication: Soft tissue sarcoma
     Dosage: 4MG ONCE EVERY 3 WEEKS SUBCUTANEOUSLY
     Route: 058
     Dates: start: 20220804

REACTIONS (1)
  - Hospitalisation [None]
